FAERS Safety Report 6063639-6 (Version None)
Quarter: 2009Q1

REPORT INFORMATION
  Report Type: 
  Country: None (occurrence: None)
  Receive Date: 20090203
  Receipt Date: 20090128
  Transmission Date: 20090719
  Serious: Yes (Death)
  Sender: FDA-Public Use
  Company Number: US-GILEAD-2009-0020049

PATIENT
  Sex: Female

DRUGS (10)
  1. LETAIRIS [Suspect]
     Indication: COR PULMONALE CHRONIC
     Route: 048
     Dates: start: 20071130, end: 20090112
  2. METFORMIN HCL [Concomitant]
  3. LEVOXYL [Concomitant]
  4. LOVASTATIN [Concomitant]
  5. EVISTA [Concomitant]
  6. PROTONIX [Concomitant]
  7. ASPIRIN [Concomitant]
  8. FEOSOL [Concomitant]
  9. VITAMIN B-12 [Concomitant]
  10. CALCIUM 500 + CHW D [Concomitant]

REACTIONS (1)
  - DEATH [None]
